FAERS Safety Report 25408843 (Version 2)
Quarter: 2025Q2

REPORT INFORMATION
  Report Type: Report from Study
  Country: GB (occurrence: None)
  Receive Date: 20250607
  Receipt Date: 20250617
  Transmission Date: 20250717
  Serious: Yes (Hospitalization)
  Sender: Alvotech
  Company Number: GB-ALVOTECHPMS-2025-ALVOTECHPMS-004281

PATIENT
  Age: 31 Year
  Sex: Female

DRUGS (17)
  1. USTEKINUMAB [Suspect]
     Active Substance: USTEKINUMAB
     Indication: Psoriasis
     Dosage: 1 X 90 MG / 12 WEEK(S)?SOLUTION FOR INJECTION PRE-FILLED SYRINGES
     Route: 058
  2. LACOSAMIDE [Concomitant]
     Active Substance: LACOSAMIDE
  3. FLUOXETINE [Concomitant]
     Active Substance: FLUOXETINE HYDROCHLORIDE
  4. ZONISAMIDE [Concomitant]
     Active Substance: ZONISAMIDE
  5. BISACODYL [Concomitant]
     Active Substance: BISACODYL
  6. CETIRIZINE [Concomitant]
     Active Substance: CETIRIZINE HYDROCHLORIDE
  7. FOLIC ACID [Concomitant]
     Active Substance: FOLIC ACID
  8. HALOPERIDOL [Concomitant]
     Active Substance: HALOPERIDOL
  9. LAMOTRIGINE [Concomitant]
     Active Substance: LAMOTRIGINE
  10. CYCLIZINE [Concomitant]
     Active Substance: CYCLIZINE
  11. FERROUS FUMARATE [Concomitant]
     Active Substance: FERROUS FUMARATE
  12. HYDROCORTISONE [Concomitant]
     Active Substance: HYDROCORTISONE
  13. OMEPRAZOLE [Concomitant]
     Active Substance: OMEPRAZOLE
  14. Cetraben [Concomitant]
  15. MIDAZOLAM HYDROCHLORIDE [Concomitant]
     Active Substance: MIDAZOLAM HYDROCHLORIDE
  16. TRIMOVATE [Concomitant]
     Active Substance: CLOBETASONE BUTYRATE\NYSTATIN\OXYTETRACYCLINE CALCIUM
  17. CLOBETASONE [Concomitant]
     Active Substance: CLOBETASONE

REACTIONS (5)
  - Product dose omission issue [Unknown]
  - Gastroenteritis [Unknown]
  - Pruritus [Unknown]
  - Product ineffective [Unknown]
  - Dehydration [Unknown]
